FAERS Safety Report 5047526-8 (Version None)
Quarter: 2006Q2

REPORT INFORMATION
  Report Type: 
  Country: None (occurrence: None)
  Receive Date: 20060601
  Receipt Date: 20060327
  Transmission Date: 20061013
  Serious: No
  Sender: FDA-Public Use
  Company Number: 2006PV010969

PATIENT
  Age: 59 Year
  Sex: Male
  Weight: 102.0593 kg

DRUGS (6)
  1. BYETTA [Suspect]
     Indication: DIABETES MELLITUS NON-INSULIN-DEPENDENT
     Dosage: 10 MCG;BID;SC
     Route: 058
     Dates: start: 20051015
  2. ACTOS [Concomitant]
  3. GLIPIZIDE/METFORMIN [Concomitant]
  4. ENALAPRIL MALEATE [Concomitant]
  5. TOPROL-XL [Concomitant]
  6. PRAVACHOL [Concomitant]

REACTIONS (1)
  - ALBUMIN URINE PRESENT [None]
